FAERS Safety Report 9860604 (Version 2)
Quarter: 2014Q1

REPORT INFORMATION
  Report Type: Spontaneous
  Country: DK (occurrence: DK)
  Receive Date: 20140202
  Receipt Date: 20140202
  Transmission Date: 20141002
  Serious: No
  Sender: FDA-Public Use
  Company Number: DK-ALLERGAN-1213694US

PATIENT
  Age: 44 Year
  Sex: Female

DRUGS (2)
  1. BOTOX [Suspect]
     Indication: BRUXISM
     Dosage: 56 UNITS, SINGLE
     Route: 030
     Dates: start: 20120326, end: 20120326
  2. BOTOX [Suspect]
     Dosage: 50 UNITS, SINGLE
     Route: 030
     Dates: start: 20120918, end: 20120918

REACTIONS (2)
  - Speech disorder [Not Recovered/Not Resolved]
  - Paraesthesia [Not Recovered/Not Resolved]
